FAERS Safety Report 25691280 (Version 1)
Quarter: 2025Q3

REPORT INFORMATION
  Report Type: Spontaneous
  Country: US (occurrence: None)
  Receive Date: 20250816
  Receipt Date: 20250816
  Transmission Date: 20251021
  Serious: Yes (Other)
  Sender: FDA-CTU
  Company Number: None

PATIENT
  Age: 71 Year
  Sex: Male
  Weight: 100.9 kg

DRUGS (1)
  1. BAQSIMI [Suspect]
     Active Substance: GLUCAGON
     Indication: Hypoglycaemia
     Route: 045
     Dates: start: 20250815, end: 20250815

REACTIONS (3)
  - Pain [None]
  - Head discomfort [None]
  - Loss of consciousness [None]

NARRATIVE: CASE EVENT DATE: 20250815
